FAERS Safety Report 18823470 (Version 1)
Quarter: 2021Q1

REPORT INFORMATION
  Report Type: Spontaneous
  Country: CN (occurrence: CN)
  Receive Date: 20210202
  Receipt Date: 20210202
  Transmission Date: 20210419
  Serious: Yes (Hospitalization)
  Sender: FDA-Public Use
  Company Number: CN-PFIZER INC-2021082060

PATIENT
  Age: 50 Year
  Sex: Male

DRUGS (3)
  1. TEGAFUR [Suspect]
     Active Substance: TEGAFUR
     Indication: HEPATIC CANCER
     Dosage: 0.2 G, 1X/DAY
     Dates: start: 20201228, end: 20201228
  2. OXALIPLATIN. [Suspect]
     Active Substance: OXALIPLATIN
     Indication: HEPATIC CANCER
     Dosage: 50 MG, 1X/DAY
     Dates: start: 20201228, end: 20201228
  3. PHARMORUBICIN [Suspect]
     Active Substance: EPIRUBICIN
     Indication: HEPATIC CANCER
     Dosage: 10 MG, 1X/DAY
     Dates: start: 20201228, end: 20201228

REACTIONS (1)
  - Hepatic function abnormal [Recovering/Resolving]

NARRATIVE: CASE EVENT DATE: 20210101
